FAERS Safety Report 13721511 (Version 1)
Quarter: 2017Q3

REPORT INFORMATION
  Report Type: Spontaneous
  Country: US (occurrence: US)
  Receive Date: 20170706
  Receipt Date: 20170706
  Transmission Date: 20171127
  Serious: No
  Sender: FDA-Public Use
  Company Number: None

PATIENT
  Sex: Female

DRUGS (1)
  1. DEXAMETHASONE INJ 10MG/ML 10ML MDV [Suspect]
     Active Substance: DEXAMETHASONE
     Indication: NAUSEA
     Route: 042
     Dates: start: 20170626, end: 20170630

REACTIONS (2)
  - Injection site pain [None]
  - Vulvovaginal discomfort [None]
